FAERS Safety Report 24466385 (Version 1)
Quarter: 2024Q4

REPORT INFORMATION
  Report Type: Report from Study
  Country: US (occurrence: US)
  Receive Date: 20241018
  Receipt Date: 20241018
  Transmission Date: 20250114
  Serious: No
  Sender: ROCHE
  Company Number: US-ROCHE-3541977

PATIENT
  Age: 11 Year
  Sex: Male
  Weight: 45.36 kg

DRUGS (3)
  1. XOLAIR [Suspect]
     Active Substance: OMALIZUMAB
     Indication: Urticaria
     Route: 030
     Dates: start: 202312, end: 202401
  2. BENADRYL [Suspect]
     Active Substance: DIPHENHYDRAMINE HYDROCHLORIDE
     Indication: Urticaria
     Dosage: 10CC EVERY 4 TO 6 HOURS
     Route: 048
     Dates: start: 20240328
  3. PREDNISONE [Suspect]
     Active Substance: PREDNISONE
     Indication: Urticaria
     Route: 065
     Dates: start: 20240405

REACTIONS (6)
  - Urticaria [Recovering/Resolving]
  - Somnolence [Not Recovered/Not Resolved]
  - Haematoma [Not Recovered/Not Resolved]
  - Off label use [Unknown]
  - Swelling [Recovering/Resolving]
  - Pruritus [Recovering/Resolving]

NARRATIVE: CASE EVENT DATE: 20231201
